FAERS Safety Report 19567720 (Version 3)
Quarter: 2021Q3

REPORT INFORMATION
  Report Type: Spontaneous
  Country: US (occurrence: US)
  Receive Date: 20210716
  Receipt Date: 20210817
  Transmission Date: 20211014
  Serious: No
  Sender: FDA-Public Use
  Company Number: US-SA-2021SA231022

PATIENT
  Age: 72 Year
  Sex: Female

DRUGS (1)
  1. TOUJEO [Suspect]
     Active Substance: INSULIN GLARGINE
     Indication: TYPE 2 DIABETES MELLITUS
     Dosage: 30?40 UNITS, QD
     Route: 065

REACTIONS (5)
  - Drug dose omission by device [Unknown]
  - Blood glucose increased [Unknown]
  - Liquid product physical issue [Unknown]
  - Device issue [Unknown]
  - Device breakage [Unknown]
